FAERS Safety Report 5268555-5 (Version None)
Quarter: 2007Q1

REPORT INFORMATION
  Report Type: 
  Country: None (occurrence: None)
  Receive Date: 20070313
  Receipt Date: 20070310
  Transmission Date: 20070707
  Serious: Yes (Other)
  Sender: FDA-Public Use
  Company Number: 235900

PATIENT
  Sex: Female

DRUGS (1)
  1. RITUXAN [Suspect]
     Indication: RHEUMATOID ARTHRITIS
     Dates: start: 20061101

REACTIONS (7)
  - ASTHENIA [None]
  - FIBROMYALGIA [None]
  - HEADACHE [None]
  - MEMORY IMPAIRMENT [None]
  - NO THERAPEUTIC RESPONSE [None]
  - SYSTEMIC LUPUS ERYTHEMATOSUS [None]
  - TEMPERATURE INTOLERANCE [None]
